FAERS Safety Report 17705474 (Version 1)
Quarter: 2020Q2

REPORT INFORMATION
  Report Type: Spontaneous
  Country: US (occurrence: US)
  Receive Date: 20200424
  Receipt Date: 20200424
  Transmission Date: 20200714
  Serious: Yes (Life-Threatening, Hospitalization, Other)
  Sender: FDA-Public Use
  Company Number: US-ELI_LILLY_AND_COMPANY-US202004007142

PATIENT
  Sex: Male
  Weight: 81.6 kg

DRUGS (10)
  1. ARISTADA [Suspect]
     Active Substance: ARIPIPRAZOLE LAUROXIL
     Indication: SCHIZOPHRENIA
     Dosage: 662 MG, MONTHLY (1/M)
     Route: 030
  2. TRIHEXYPHENIDYL [Concomitant]
     Active Substance: TRIHEXYPHENIDYL
     Indication: PRODUCT USED FOR UNKNOWN INDICATION
     Dosage: 0.5 DOSAGE FORM, TID
     Route: 048
  3. BENADRYL [Interacting]
     Active Substance: DIPHENHYDRAMINE HYDROCHLORIDE
     Indication: TREMOR
  4. ESCITALOPRAM [Concomitant]
     Active Substance: ESCITALOPRAM OXALATE
     Indication: PRODUCT USED FOR UNKNOWN INDICATION
     Dosage: 0.5 DOSAGE FORM, UNKNOWN
     Route: 048
  5. BENADRYL [Interacting]
     Active Substance: DIPHENHYDRAMINE HYDROCHLORIDE
     Indication: MUSCLE SPASMS
     Dosage: UNK, UNKNOWN
     Route: 065
     Dates: start: 20191115
  6. ARISTADA [Suspect]
     Active Substance: ARIPIPRAZOLE LAUROXIL
     Indication: DEPRESSION
  7. ARISTADA INITIO [Suspect]
     Active Substance: ARIPIPRAZOLE LAUROXIL
     Indication: DEPRESSION
     Dosage: 675 MG, SINGLE
     Route: 030
     Dates: start: 20191113, end: 20191113
  8. ABILIFY [Interacting]
     Active Substance: ARIPIPRAZOLE
     Indication: PRODUCT USED FOR UNKNOWN INDICATION
     Dosage: 5 MG, DAILY
     Route: 065
  9. PROZAC [Suspect]
     Active Substance: FLUOXETINE HYDROCHLORIDE
     Indication: DEPRESSION
     Dosage: UNK, UNKNOWN
     Route: 065
  10. PROZAC [Interacting]
     Active Substance: FLUOXETINE HYDROCHLORIDE
     Dosage: UNK, UNKNOWN
     Route: 065
     Dates: start: 20200302

REACTIONS (29)
  - Hallucination, auditory [Unknown]
  - Cough [Unknown]
  - Skin swelling [Recovered/Resolved]
  - Tremor [Not Recovered/Not Resolved]
  - Diarrhoea [Unknown]
  - Skin hypertrophy [Unknown]
  - Muscle twitching [Unknown]
  - Myoclonus [Recovered/Resolved]
  - Depression [Unknown]
  - Peripheral swelling [Unknown]
  - Nausea [Unknown]
  - Malaise [Unknown]
  - Decreased activity [Unknown]
  - Pneumonia [Unknown]
  - Choking [Unknown]
  - Foot deformity [Not Recovered/Not Resolved]
  - Fall [Unknown]
  - Delusion [Unknown]
  - Muscle spasms [Unknown]
  - Dizziness [Unknown]
  - Tic [Unknown]
  - Dyspnoea [Unknown]
  - Dysstasia [Unknown]
  - Toxicity to various agents [Unknown]
  - Parkinson^s disease [Unknown]
  - Coronavirus infection [Unknown]
  - Tardive dyskinesia [Unknown]
  - Drug interaction [Unknown]
  - Skin striae [Unknown]
